FAERS Safety Report 4579399-1 (Version None)
Quarter: 2005Q1

REPORT INFORMATION
  Report Type: 
  Country: None (occurrence: None)
  Receive Date: 20050209
  Receipt Date: 20050125
  Transmission Date: 20050727
  Serious: Yes (Other)
  Sender: FDA-Public Use
  Company Number: USA041184844

PATIENT
  Age: 77 Year
  Sex: Female
  Weight: 64 kg

DRUGS (5)
  1. ZYPREXA [Suspect]
     Indication: BIPOLAR DISORDER
     Dosage: 5 MG/ 1 DAY
     Dates: start: 20020101
  2. ZOCOR (SIMVASTATIN RATIOPHARM) [Concomitant]
  3. ARICEPT [Concomitant]
  4. ZOCOR (SIMVASTTIN RATIOPHARM) [Concomitant]
  5. ARICEPT [Concomitant]

REACTIONS (3)
  - BREAST CANCER FEMALE [None]
  - INFLAMMATORY CARCINOMA OF THE BREAST [None]
  - OESTROGEN RECEPTOR ASSAY POSITIVE [None]
